FAERS Safety Report 9835517 (Version 1)
Quarter: 2014Q1

REPORT INFORMATION
  Report Type: Spontaneous
  Country: US (occurrence: US)
  Receive Date: 20140122
  Receipt Date: 20140122
  Transmission Date: 20141002
  Serious: No
  Sender: FDA-Public Use
  Company Number: US-BRISTOL-MYERS SQUIBB COMPANY-19715564

PATIENT
  Age: 78 Year
  Sex: Female
  Weight: 65.76 kg

DRUGS (1)
  1. ELIQUIS [Suspect]
     Dosage: ELIQUIS 2.5 MG TWICE DAILY
     Dates: start: 20130412

REACTIONS (3)
  - Rash pruritic [Unknown]
  - Skin burning sensation [Unknown]
  - Drug administration error [Unknown]
